FAERS Safety Report 11197897 (Version 1)
Quarter: 2015Q2

REPORT INFORMATION
  Report Type: Spontaneous
  Country: US (occurrence: US)
  Receive Date: 20150617
  Receipt Date: 20150617
  Transmission Date: 20150821
  Serious: Yes (Other)
  Sender: FDA-Public Use
  Company Number: US-ALLERGAN-1511036US

PATIENT
  Age: 74 Year
  Sex: Female
  Weight: 44.44 kg

DRUGS (1)
  1. RESTASIS [Suspect]
     Active Substance: CYCLOSPORINE
     Indication: PRODUCT USED FOR UNKNOWN INDICATION
     Dosage: UNK
     Route: 047
     Dates: end: 201503

REACTIONS (3)
  - Cataract [Recovered/Resolved]
  - Drug dose omission [Unknown]
  - Astigmatism [Recovered/Resolved]
